FAERS Safety Report 5236309-1 (Version None)
Quarter: 2007Q1

REPORT INFORMATION
  Report Type: 
  Country: None (occurrence: None)
  Receive Date: 20070212
  Receipt Date: 20070131
  Transmission Date: 20070707
  Serious: Yes (Other)
  Sender: FDA-Public Use
  Company Number: US-PFIZER INC-2007008513

PATIENT
  Sex: Female
  Weight: 65.3 kg

DRUGS (2)
  1. CHANTIX [Suspect]
     Indication: SMOKING CESSATION THERAPY
  2. VITAMIN CAP [Concomitant]

REACTIONS (7)
  - DECREASED APPETITE [None]
  - DEHYDRATION [None]
  - FEELING ABNORMAL [None]
  - HYPOAESTHESIA [None]
  - NERVOUSNESS [None]
  - ORAL DISCOMFORT [None]
  - STARING [None]
